FAERS Safety Report 8159432-0 (Version None)
Quarter: 2012Q1

REPORT INFORMATION
  Report Type: 
  Country: None (occurrence: None)
  Receive Date: 20120223
  Receipt Date: 20120220
  Transmission Date: 20120608
  Serious: Yes (Life-Threatening, Hospitalization)
  Sender: FDA-Public Use
  Company Number: JP-BAYER-2012-011304

PATIENT
  Age: 68 Year
  Sex: Male
  Weight: 92 kg

DRUGS (14)
  1. METOPROLOL TARTRATE [Concomitant]
     Indication: ANGINA PECTORIS
     Dosage: DAILY DOSE 40 MG
     Route: 048
  2. SIMVASTATIN [Concomitant]
     Indication: HYPERLIPIDAEMIA
     Dosage: DAILY DOSE 5 MG
     Route: 048
  3. PURSENNID [Concomitant]
     Indication: CONSTIPATION
     Dosage: DAILY DOSE 24 MG
     Route: 048
  4. ASPIRIN [Concomitant]
     Indication: ANGINA PECTORIS
     Dosage: 100 MG, QD
     Route: 048
  5. ANTI-DIABETICS [Concomitant]
     Indication: DIABETES MELLITUS
     Dosage: 25 MG, QD
     Route: 048
  6. NEXAVAR [Suspect]
     Indication: HEPATIC NEOPLASM MALIGNANT
     Dosage: 400 MG, QD
     Route: 048
     Dates: start: 20120107, end: 20120113
  7. MAGNESIUM SULFATE [Concomitant]
     Indication: CONSTIPATION
     Dosage: DAILY DOSE 1980 MG
     Route: 048
  8. TEPRENONE [Concomitant]
     Indication: DUODENAL ULCER
     Dosage: DAILY DOSE 150 MG
     Route: 048
  9. ESTAZOLAM [Concomitant]
     Indication: INSOMNIA
     Dosage: 2 MG, QD
     Route: 048
  10. LANSOPRAZOLE [Concomitant]
     Indication: DUODENAL ULCER
     Dosage: DAILY DOSE 15 MG
     Route: 048
  11. METFORMIN HCL [Concomitant]
     Indication: DIABETES MELLITUS
     Dosage: DAILY DOSE 500 MG
     Route: 048
  12. ALLOPURINOL [Concomitant]
     Indication: HYPERURICAEMIA
     Dosage: DAILY DOSE 200 MG
     Route: 048
  13. GLIMEPIRIDE [Concomitant]
     Indication: DIABETES MELLITUS
     Dosage: DAILY DOSE 1 MG
     Route: 048
  14. CORTRIL [Concomitant]
     Indication: ADRENAL INSUFFICIENCY
     Dosage: DAILY DOSE 25 MG
     Route: 048

REACTIONS (1)
  - ANGINA PECTORIS [None]
